FAERS Safety Report 18787154 (Version 1)
Quarter: 2021Q1

REPORT INFORMATION
  Report Type: Spontaneous
  Country: US (occurrence: US)
  Receive Date: 20210125
  Receipt Date: 20210125
  Transmission Date: 20210419
  Serious: Yes (Other)
  Sender: FDA-Public Use
  Company Number: US-ROCHE-2635878

PATIENT
  Sex: Female
  Weight: 61.8 kg

DRUGS (9)
  1. GAZYVA [Concomitant]
     Active Substance: OBINUTUZUMAB
     Indication: DIFFUSE LARGE B-CELL LYMPHOMA
     Route: 042
     Dates: start: 20200625
  2. RITUXAN [Suspect]
     Active Substance: RITUXIMAB
     Indication: CHRONIC LYMPHOCYTIC LEUKAEMIA
     Dosage: BR (2 CYCLES) AND R?CHOP (6 CYCLES) ;ONGOING: NO
     Route: 042
     Dates: start: 20130701, end: 20140414
  3. PREDNISOLONE. [Concomitant]
     Active Substance: PREDNISOLONE
     Indication: CHRONIC LYMPHOCYTIC LEUKAEMIA
     Dosage: ONGOING: NO
     Route: 048
     Dates: start: 20140103, end: 20140414
  4. GAZYVA [Concomitant]
     Active Substance: OBINUTUZUMAB
     Route: 042
     Dates: start: 20200627
  5. RITUXAN [Suspect]
     Active Substance: RITUXIMAB
     Indication: DIFFUSE LARGE B-CELL LYMPHOMA
  6. BENDAMUSTINE [Suspect]
     Active Substance: BENDAMUSTINE
     Indication: CHRONIC LYMPHOCYTIC LEUKAEMIA
     Dosage: ONGOING NO
     Route: 042
     Dates: start: 20130701, end: 20131106
  7. DOXORUBICIN [Concomitant]
     Active Substance: DOXORUBICIN
     Indication: CHRONIC LYMPHOCYTIC LEUKAEMIA
     Dosage: ONGOING: NO
     Route: 042
     Dates: start: 20140103, end: 20140414
  8. VINCRISTINE [Concomitant]
     Active Substance: VINCRISTINE
     Indication: CHRONIC LYMPHOCYTIC LEUKAEMIA
     Dosage: ONGOING: NO
     Route: 042
     Dates: start: 20140103, end: 20140414
  9. CYCLOPHOSPHAMIDE. [Concomitant]
     Active Substance: CYCLOPHOSPHAMIDE
     Indication: CHRONIC LYMPHOCYTIC LEUKAEMIA
     Dosage: ONGOING: NO
     Route: 048
     Dates: start: 20140103, end: 20140414

REACTIONS (2)
  - Cytopenia [Recovered/Resolved]
  - Dysphagia [Unknown]
